FAERS Safety Report 7766126-X (Version None)
Quarter: 2011Q3

REPORT INFORMATION
  Report Type: 
  Country: None (occurrence: None)
  Receive Date: 20110921
  Receipt Date: 20110915
  Transmission Date: 20111222
  Serious: Yes (Other)
  Sender: FDA-Public Use
  Company Number: US-PFIZER INC-2011218910

PATIENT
  Sex: Female
  Weight: 79.365 kg

DRUGS (1)
  1. LYRICA [Suspect]
     Indication: NEUROMYOPATHY
     Dosage: 100 MG ONCE IN THE MORNING AND TWO AT NIGHT
     Route: 048
     Dates: start: 20050101

REACTIONS (5)
  - GASTROOESOPHAGEAL REFLUX DISEASE [None]
  - EYE DISORDER [None]
  - EYE OEDEMA [None]
  - BLINDNESS UNILATERAL [None]
  - CLAVICLE FRACTURE [None]
